FAERS Safety Report 4805887-6 (Version None)
Quarter: 2005Q4

REPORT INFORMATION
  Report Type: 
  Country: None (occurrence: None)
  Receive Date: 20051018
  Receipt Date: 20051018
  Transmission Date: 20060501
  Serious: Yes (Other)
  Sender: FDA-Public Use
  Company Number: None

PATIENT
  Sex: Female
  Weight: 70.3075 kg

DRUGS (1)
  1. ACCUTANE [Suspect]
     Dates: start: 19990101, end: 20000101

REACTIONS (1)
  - CROHN'S DISEASE [None]
